FAERS Safety Report 18814008 (Version 2)
Quarter: 2021Q3

REPORT INFORMATION
  Report Type: Spontaneous
  Country: DK (occurrence: DK)
  Receive Date: 20210201
  Receipt Date: 20210817
  Transmission Date: 20211014
  Serious: Yes (Hospitalization, Other)
  Sender: FDA-Public Use
  Company Number: DK-ACCORD-211371

PATIENT
  Age: 27 Year
  Sex: Male

DRUGS (6)
  1. ARIPIPRAZOLE. [Suspect]
     Active Substance: ARIPIPRAZOLE
     Indication: PRODUCT USED FOR UNKNOWN INDICATION
     Dosage: 3?4 TIMES THE PRESCRIBED DOSE OF 15 MG OVER SEVERAL WEEKS.
  2. QUETIAPINE/QUETIAPINE FUMARATE [Concomitant]
     Active Substance: QUETIAPINE FUMARATE
  3. BUPRENORPHINE / NALOXONE MYLAN [Concomitant]
  4. METHYLPHENIDATE. [Concomitant]
     Active Substance: METHYLPHENIDATE
  5. OXAZEPAM. [Concomitant]
     Active Substance: OXAZEPAM
  6. PREGABALIN. [Concomitant]
     Active Substance: PREGABALIN

REACTIONS (4)
  - Overdose [Unknown]
  - Neuroleptic malignant syndrome [Recovered/Resolved]
  - Toxicity to various agents [Unknown]
  - Rhabdomyolysis [Recovered/Resolved]
